FAERS Safety Report 19611696 (Version 1)
Quarter: 2021Q3

REPORT INFORMATION
  Report Type: Spontaneous
  Country: GB (occurrence: GB)
  Receive Date: 20210726
  Receipt Date: 20210726
  Transmission Date: 20211014
  Serious: Yes (Other)
  Sender: FDA-Public Use
  Company Number: GB-TEVA-2021-GB-1935175

PATIENT
  Age: 59 Year
  Sex: Female
  Weight: 155.57 kg

DRUGS (2)
  1. AMLODIPINE [Suspect]
     Active Substance: AMLODIPINE BESYLATE
     Indication: HYPERTENSION
     Dosage: 10MG
     Route: 048
     Dates: end: 20210712
  2. RAMIPRIL. [Concomitant]
     Active Substance: RAMIPRIL
     Dosage: 10MG

REACTIONS (3)
  - Joint swelling [Unknown]
  - Gingival swelling [Unknown]
  - Peripheral swelling [Unknown]
